FAERS Safety Report 21087306 (Version 1)
Quarter: 2022Q3

REPORT INFORMATION
  Report Type: Spontaneous
  Country: IT (occurrence: IT)
  Receive Date: 20220715
  Receipt Date: 20220715
  Transmission Date: 20221027
  Serious: Yes (Other)
  Sender: FDA-Public Use
  Company Number: IT-NOVARTISPH-NVSC2022IT138443

PATIENT
  Sex: Male

DRUGS (2)
  1. BEOVU [Suspect]
     Active Substance: BROLUCIZUMAB-DBLL
     Indication: Age-related macular degeneration
     Dosage: UNK
     Route: 065
     Dates: start: 20220329
  2. BEOVU [Suspect]
     Active Substance: BROLUCIZUMAB-DBLL
     Dosage: UNK
     Route: 065
     Dates: start: 20220503

REACTIONS (6)
  - Uveitis [Recovered/Resolved]
  - Vitreous opacities [Unknown]
  - Vitreous floaters [Unknown]
  - Vision blurred [Unknown]
  - Keratic precipitates [Recovered/Resolved]
  - Anterior chamber cell [Recovered/Resolved]
